FAERS Safety Report 8460387-X (Version None)
Quarter: 2012Q2

REPORT INFORMATION
  Report Type: 
  Country: None (occurrence: None)
  Receive Date: 20120323
  Receipt Date: 20111214
  Transmission Date: 20120825
  Serious: Yes (Hospitalization, Other)
  Sender: FDA-Public Use
  Company Number: 163-21880-11110191

PATIENT
  Age: 62 Year
  Sex: Male
  Weight: 83.9154 kg

DRUGS (15)
  1. AMBIEN [Concomitant]
  2. ZOMETA [Concomitant]
  3. ALBUTEROL [Concomitant]
  4. FENTANYL [Concomitant]
  5. BACTRIM [Concomitant]
  6. CYMBALTA [Concomitant]
  7. REVLIMID [Suspect]
     Indication: MULTIPLE MYELOMA
     Dosage: 15 MG,1 IN 1, PO; 10 MG, Q48H, PO; 10 MG, Q48H, PO
     Route: 048
     Dates: start: 20090401
  8. REVLIMID [Suspect]
     Indication: MULTIPLE MYELOMA
     Dosage: 15 MG,1 IN 1, PO; 10 MG, Q48H, PO; 10 MG, Q48H, PO
     Route: 048
     Dates: start: 20100127
  9. REVLIMID [Suspect]
     Indication: MULTIPLE MYELOMA
     Dosage: 15 MG,1 IN 1, PO; 10 MG, Q48H, PO; 10 MG, Q48H, PO
     Route: 048
     Dates: start: 20100601
  10. PULMICORT [Concomitant]
  11. ZOFRAN [Concomitant]
  12. OXYGEN (OXYGEN) [Suspect]
     Indication: CHEST PAIN
     Dates: start: 20111027
  13. ACYCLOVIR [Concomitant]
  14. OSCAL (CALCIUM CARBONATE) [Concomitant]
  15. TORADOL [Concomitant]

REACTIONS (3)
  - NON-CARDIAC CHEST PAIN [None]
  - BLOOD CREATININE INCREASED [None]
  - COMPRESSION FRACTURE [None]
